FAERS Safety Report 7233037-8 (Version None)
Quarter: 2011Q1

REPORT INFORMATION
  Report Type: 
  Country: None (occurrence: None)
  Receive Date: 20110119
  Receipt Date: 20110113
  Transmission Date: 20110831
  Serious: Yes (Other)
  Sender: FDA-Public Use
  Company Number: US-ASTRAZENECA-2006UW16029

PATIENT
  Age: 50 Year
  Sex: Female
  Weight: 95.3 kg

DRUGS (5)
  1. SEROQUEL [Suspect]
     Indication: BIPOLAR DISORDER
     Route: 048
     Dates: start: 20030107, end: 20050124
  2. RISPERDAL [Suspect]
     Dates: start: 20020926, end: 20040526
  3. SEROQUEL [Suspect]
     Indication: ANXIETY
     Route: 048
     Dates: start: 20030107, end: 20050124
  4. SEROQUEL [Suspect]
     Indication: SLEEP DISORDER
     Route: 048
     Dates: start: 20030107, end: 20050124
  5. GEODON [Concomitant]
     Dates: start: 20050201

REACTIONS (6)
  - RETINOPATHY [None]
  - BLOOD TRIGLYCERIDES INCREASED [None]
  - WEIGHT INCREASED [None]
  - TYPE 2 DIABETES MELLITUS [None]
  - DEPRESSION [None]
  - BLOOD CHOLESTEROL INCREASED [None]
